FAERS Safety Report 12763692 (Version 2)
Quarter: 2016Q4

REPORT INFORMATION
  Report Type: Spontaneous
  Country: US (occurrence: US)
  Receive Date: 20160920
  Receipt Date: 20161025
  Transmission Date: 20170207
  Serious: Yes (Death)
  Sender: FDA-Public Use
  Company Number: US-INSYS THERAPEUTICS, INC-INS201609-000491

PATIENT
  Age: 59 Year
  Sex: Male
  Weight: 72.57 kg

DRUGS (8)
  1. SUBSYS [Suspect]
     Active Substance: FENTANYL
     Indication: BREAKTHROUGH PAIN
     Route: 060
     Dates: start: 20160830, end: 20160905
  2. CARVEDILOL. [Concomitant]
     Active Substance: CARVEDILOL
  3. LISINOPRIL. [Concomitant]
     Active Substance: LISINOPRIL
  4. PRAVASTATIN. [Concomitant]
     Active Substance: PRAVASTATIN
  5. METFORMIN [Concomitant]
     Active Substance: METFORMIN HYDROCHLORIDE
  6. PANTOPRAZOLE [Concomitant]
     Active Substance: PANTOPRAZOLE SODIUM
  7. AMBIEN [Concomitant]
     Active Substance: ZOLPIDEM TARTRATE
  8. FENTANYL TRANSDERMAL SYSTEM [Concomitant]
     Active Substance: FENTANYL

REACTIONS (1)
  - Neoplasm progression [Fatal]

NARRATIVE: CASE EVENT DATE: 20160905
